FAERS Safety Report 15346551 (Version 5)
Quarter: 2019Q1

REPORT INFORMATION
  Report Type: Spontaneous
  Country: US (occurrence: US)
  Receive Date: 20180904
  Receipt Date: 20190219
  Transmission Date: 20190417
  Serious: Yes (Other)
  Sender: FDA-Public Use
  Company Number: US-PFIZER INC-2018351839

PATIENT
  Age: 70 Year
  Sex: Female
  Weight: 61.22 kg

DRUGS (3)
  1. FASLODEX [Suspect]
     Active Substance: FULVESTRANT
     Dosage: UNK UNK, MONTHLY (ONCE A MONTH)
     Route: 030
     Dates: end: 20181015
  2. IBRANCE [Suspect]
     Active Substance: PALBOCICLIB
     Indication: BREAST CANCER FEMALE
     Dosage: 125 MG, DAILY
     Route: 048
     Dates: end: 20181015
  3. FASLODEX [Suspect]
     Active Substance: FULVESTRANT
     Indication: BREAST CANCER
     Dosage: UNK (TWICE A MONTH)

REACTIONS (3)
  - Neoplasm progression [Unknown]
  - Pain of skin [Not Recovered/Not Resolved]
  - Neuropathy peripheral [Not Recovered/Not Resolved]
